FAERS Safety Report 13108428 (Version 1)
Quarter: 2017Q1

REPORT INFORMATION
  Report Type: Spontaneous
  Country: DK (occurrence: DK)
  Receive Date: 20170112
  Receipt Date: 20170112
  Transmission Date: 20170428
  Serious: Yes (Other)
  Sender: FDA-Public Use
  Company Number: PHHY2017DK004246

PATIENT
  Age: 48 Year
  Sex: Female

DRUGS (4)
  1. TRAMETINIB [Concomitant]
     Active Substance: TRAMETINIB
     Indication: METASTATIC MALIGNANT MELANOMA
     Dosage: UNK
     Route: 065
     Dates: start: 201504
  2. DABRAFENIB [Suspect]
     Active Substance: DABRAFENIB
     Dosage: UNK
     Route: 065
  3. TRAMETINIB [Concomitant]
     Active Substance: TRAMETINIB
     Dosage: UNK
     Route: 065
  4. DABRAFENIB [Suspect]
     Active Substance: DABRAFENIB
     Indication: METASTATIC MALIGNANT MELANOMA
     Dosage: UNK
     Route: 065
     Dates: start: 201503

REACTIONS (6)
  - Radiation myelopathy [Not Recovered/Not Resolved]
  - Recall phenomenon [Unknown]
  - Rash [Unknown]
  - Paraesthesia [Unknown]
  - Spinal cord oedema [Not Recovered/Not Resolved]
  - Back pain [Unknown]

NARRATIVE: CASE EVENT DATE: 201506
